FAERS Safety Report 5817913-6 (Version None)
Quarter: 2008Q3

REPORT INFORMATION
  Report Type: 
  Country: None (occurrence: None)
  Receive Date: 20080722
  Receipt Date: 20070808
  Transmission Date: 20090109
  Serious: Yes (Other)
  Sender: FDA-Public Use
  Company Number: US-BAYER-US-2007-025758

PATIENT
  Age: 38 Year
  Sex: Male

DRUGS (1)
  1. MAGNEVIST [Suspect]
     Dosage: UNIT DOSE: 20 ML
     Dates: start: 20070627, end: 20070627

REACTIONS (3)
  - CHEST PAIN [None]
  - DYSPNOEA [None]
  - VOMITING [None]
